FAERS Safety Report 5204410-4 (Version None)
Quarter: 2007Q1

REPORT INFORMATION
  Report Type: 
  Country: None (occurrence: None)
  Receive Date: 20070110
  Receipt Date: 20060317
  Transmission Date: 20070707
  Serious: No
  Sender: FDA-Public Use
  Company Number: US-BRISTOL-MYERS SQUIBB COMPANY-13319637

PATIENT
  Sex: Female
  Weight: 73 kg

DRUGS (4)
  1. ABILIFY [Suspect]
  2. LEVOXYL [Concomitant]
  3. XANAX [Concomitant]
  4. METHADONE HCL [Concomitant]

REACTIONS (3)
  - DISORIENTATION [None]
  - PALPITATIONS [None]
  - SOMNOLENCE [None]
